FAERS Safety Report 5685341-2 (Version None)
Quarter: 2008Q1

REPORT INFORMATION
  Report Type: 
  Country: None (occurrence: None)
  Receive Date: 20080328
  Receipt Date: 20080317
  Transmission Date: 20080703
  Serious: Yes (Other)
  Sender: FDA-Public Use
  Company Number: US-PFIZER INC-2008025156

PATIENT
  Sex: Male
  Weight: 119 kg

DRUGS (12)
  1. CHANTIX [Suspect]
     Indication: SMOKING CESSATION THERAPY
     Route: 048
  2. CELEBREX [Concomitant]
     Indication: ARTHRITIS
  3. AVALIDE [Concomitant]
  4. METFORMIN HCL [Concomitant]
  5. CADUET [Concomitant]
  6. GLYBURIDE [Concomitant]
  7. OMEPRAZOLE [Concomitant]
  8. SITAGLIPTIN [Concomitant]
  9. PERCOCET [Concomitant]
  10. OSTEO BI-FLEX [Concomitant]
  11. CENTRUM SILVER [Concomitant]
  12. ACETYLSALICYLIC ACID SRT [Concomitant]

REACTIONS (2)
  - BLOOD GLUCOSE INCREASED [None]
  - LABORATORY TEST ABNORMAL [None]
